FAERS Safety Report 12702589 (Version 1)
Quarter: 2016Q3

REPORT INFORMATION
  Report Type: Spontaneous
  Country: US (occurrence: US)
  Receive Date: 20160831
  Receipt Date: 20160831
  Transmission Date: 20161109
  Serious: No
  Sender: FDA-Public Use
  Company Number: US-JNJFOC-20160624760

PATIENT
  Age: 15 Year
  Sex: Female
  Weight: 58.97 kg

DRUGS (1)
  1. STELARA [Suspect]
     Active Substance: USTEKINUMAB
     Indication: PSORIASIS
     Dosage: 270 MG INITIAL LOADING DOSE.
     Route: 058
     Dates: start: 20160627

REACTIONS (5)
  - Incorrect dose administered [Unknown]
  - Drug dose omission [Unknown]
  - Underdose [Unknown]
  - Syringe issue [Unknown]
  - Off label use [Unknown]

NARRATIVE: CASE EVENT DATE: 201601
